FAERS Safety Report 5129671-1 (Version None)
Quarter: 2006Q4

REPORT INFORMATION
  Report Type: 
  Country: None (occurrence: None)
  Receive Date: 20061018
  Receipt Date: 20061013
  Transmission Date: 20070319
  Serious: Yes (Life-Threatening, Hospitalization)
  Sender: FDA-Public Use
  Company Number: BR-GLAXOSMITHKLINE-A0623768A

PATIENT
  Age: 59 Year
  Sex: Female
  Weight: 71 kg

DRUGS (4)
  1. SERETIDE [Suspect]
     Route: 055
     Dates: start: 20020101
  2. AMLODIPINE [Concomitant]
     Dates: start: 20040101
  3. ASPIRIN [Concomitant]
     Dates: start: 20030101
  4. ATENOLOL [Concomitant]
     Dates: start: 20040101

REACTIONS (2)
  - BURNING SENSATION [None]
  - CEREBROVASCULAR ACCIDENT [None]
